FAERS Safety Report 9417026 (Version 1)
Quarter: 2013Q3

REPORT INFORMATION
  Report Type: Spontaneous
  Country: US (occurrence: US)
  Receive Date: 20130722
  Receipt Date: 20130722
  Transmission Date: 20140515
  Serious: Yes (Hospitalization, Other)
  Sender: FDA-Public Use
  Company Number: AUR-APL-2013-06056

PATIENT
  Sex: 0

DRUGS (1)
  1. VENLAFAXINE (VENLAFAXINE) [Suspect]
     Indication: DEPRESSION

REACTIONS (3)
  - Feeling abnormal [None]
  - Suicidal ideation [None]
  - Vomiting [None]
